FAERS Safety Report 24090199 (Version 1)
Quarter: 2024Q3

REPORT INFORMATION
  Report Type: Spontaneous
  Country: US (occurrence: US)
  Receive Date: 20240715
  Receipt Date: 20240715
  Transmission Date: 20241016
  Serious: No
  Sender: PERRIGO
  Company Number: US-PERRIGO-23US013025

PATIENT

DRUGS (2)
  1. MINOXIDIL [Suspect]
     Active Substance: MINOXIDIL
     Indication: Product used for unknown indication
     Dosage: UNKNOWN
     Route: 061
  2. MINOXIDIL [Suspect]
     Active Substance: MINOXIDIL
     Indication: Accidental exposure to product
     Dosage: UNKNOWN
     Route: 048

REACTIONS (5)
  - Application site exfoliation [Unknown]
  - Application site pruritus [Unknown]
  - Hair texture abnormal [Unknown]
  - Drug ineffective [Unknown]
  - Accidental exposure to product [Unknown]
